FAERS Safety Report 16125599 (Version 1)
Quarter: 2019Q1

REPORT INFORMATION
  Report Type: Spontaneous
  Country: FR (occurrence: FR)
  Receive Date: 20190328
  Receipt Date: 20190328
  Transmission Date: 20190418
  Serious: Yes (Hospitalization)
  Sender: FDA-Public Use
  Company Number: FR-ROCHE-2286162

PATIENT
  Age: 64 Year
  Sex: Male

DRUGS (17)
  1. URBANYL [Interacting]
     Active Substance: CLOBAZAM
     Indication: SCHIZOPHRENIA
     Route: 048
  2. LOXAPAC [Concomitant]
     Active Substance: LOXAPINE
     Indication: SCHIZOPHRENIA
     Route: 048
     Dates: start: 20181025, end: 20181025
  3. MIANSERINE [Concomitant]
     Active Substance: MIANSERIN HYDROCHLORIDE
     Route: 048
  4. DUPHALAC (FRANCE) [Concomitant]
     Active Substance: LACTULOSE
     Route: 048
  5. NICOPATCH [Concomitant]
     Active Substance: NICOTINE
     Route: 062
     Dates: start: 20181029
  6. MODOPAR LP 125 [Concomitant]
     Indication: PARKINSONISM
     Route: 048
     Dates: start: 20181023
  7. LEVOTHYROX [Concomitant]
     Active Substance: LEVOTHYROXINE
     Route: 048
  8. NEULEPTIL [Interacting]
     Active Substance: PERICIAZINE
     Indication: SCHIZOPHRENIA
     Dosage: UNIT DOSE: 20 [DRP]
     Route: 048
     Dates: start: 20181025
  9. CALCIDOSE VITAMINE D [Concomitant]
     Active Substance: CALCIUM\CHOLECALCIFEROL
     Route: 048
  10. LYRICA [Concomitant]
     Active Substance: PREGABALIN
     Route: 048
  11. BRICANYL [Concomitant]
     Active Substance: TERBUTALINE SULFATE
     Route: 055
     Dates: start: 20181030
  12. ATROVENT [Concomitant]
     Active Substance: IPRATROPIUM BROMIDE
     Route: 055
     Dates: start: 20181030
  13. VIMPAT [Concomitant]
     Active Substance: LACOSAMIDE
     Route: 048
  14. TAMSULOSINE [Concomitant]
     Active Substance: TAMSULOSIN HYDROCHLORIDE
     Route: 048
  15. DEPAKINE [Concomitant]
     Active Substance: VALPROATE SODIUM
     Route: 048
  16. RIVOTRIL [Suspect]
     Active Substance: CLONAZEPAM
     Indication: SCHIZOPHRENIA
     Route: 048
  17. TRANSIPEG (FRANCE) [Concomitant]
     Route: 048

REACTIONS (4)
  - Acute respiratory failure [Recovered/Resolved]
  - Pneumonia aspiration [Recovered/Resolved]
  - Drug interaction [Unknown]
  - Coma [Recovered/Resolved]

NARRATIVE: CASE EVENT DATE: 20181031
